FAERS Safety Report 15896550 (Version 1)
Quarter: 2019Q1

REPORT INFORMATION
  Report Type: Report from Study
  Country: US (occurrence: US)
  Receive Date: 20190131
  Receipt Date: 20190131
  Transmission Date: 20190417
  Serious: Yes (Hospitalization)
  Sender: FDA-Public Use
  Company Number: US-ACTELION-A-NJ2018-182872

PATIENT
  Age: 67 Year
  Sex: Female

DRUGS (1)
  1. OPSUMIT [Suspect]
     Active Substance: MACITENTAN
     Indication: PULMONARY ARTERIAL HYPERTENSION
     Dosage: 10 MG, QD
     Route: 048
     Dates: start: 201811, end: 20181221

REACTIONS (9)
  - Unresponsive to stimuli [Recovered/Resolved]
  - Intracranial pressure increased [Recovering/Resolving]
  - Vomiting [Unknown]
  - Weight increased [Unknown]
  - Pericardial effusion [Recovered/Resolved]
  - Nasal congestion [Not Recovered/Not Resolved]
  - Pericardial drainage [Recovered/Resolved]
  - Brain operation [Recovering/Resolving]
  - Oropharyngeal pain [Not Recovered/Not Resolved]

NARRATIVE: CASE EVENT DATE: 201811
